FAERS Safety Report 9863434 (Version 1)
Quarter: 2014Q1

REPORT INFORMATION
  Report Type: Report from Study
  Country: FR (occurrence: FR)
  Receive Date: 20140203
  Receipt Date: 20140203
  Transmission Date: 20141002
  Serious: Yes (Other)
  Sender: FDA-Public Use
  Company Number: FR-UCBSA-110735

PATIENT
  Age: 57 Year
  Sex: Female
  Weight: 63 kg

DRUGS (3)
  1. CIMZIA [Suspect]
     Indication: RHEUMATOID ARTHRITIS
     Route: 058
     Dates: start: 20120710
  2. METHOTREXATE [Suspect]
     Indication: RHEUMATOID ARTHRITIS
  3. NO CONCOMITANT MEDICATION [Concomitant]

REACTIONS (1)
  - Urinary tract infection [Recovered/Resolved]
